FAERS Safety Report 5545863-1 (Version None)
Quarter: 2007Q4

REPORT INFORMATION
  Report Type: 
  Country: None (occurrence: None)
  Receive Date: 20071211
  Receipt Date: 20070910
  Transmission Date: 20080405
  Serious: No
  Sender: FDA-Public Use
  Company Number: US-ASTRAZENECA-2007UW21456

PATIENT
  Age: 70 Year
  Sex: Female

DRUGS (5)
  1. SYMBICORT [Suspect]
     Dosage: 80/4.5 MCG
     Route: 055
     Dates: start: 20070905
  2. XOPENEX [Concomitant]
  3. ADVAIR DISKUS 100/50 [Concomitant]
     Dosage: 500/50
  4. ADVAIR DISKUS 100/50 [Concomitant]
     Dosage: SWITCHED TO
  5. NADOLOL [Concomitant]

REACTIONS (3)
  - BRONCHOSPASM [None]
  - DIZZINESS [None]
  - DYSPNOEA [None]
